FAERS Safety Report 5900614-3 (Version None)
Quarter: 2008Q3

REPORT INFORMATION
  Report Type: 
  Country: None (occurrence: None)
  Receive Date: 20080926
  Receipt Date: 20080916
  Transmission Date: 20090109
  Serious: Yes (Disabling)
  Sender: FDA-Public Use
  Company Number: NL-PFIZER INC-2008076807

PATIENT
  Age: 45 Year
  Sex: Male

DRUGS (2)
  1. CHANTIX [Suspect]
     Indication: SMOKING CESSATION THERAPY
     Route: 048
     Dates: start: 20080905, end: 20080909
  2. XYZAL [Concomitant]

REACTIONS (8)
  - ACTIVITIES OF DAILY LIVING IMPAIRED [None]
  - APATHY [None]
  - DIARRHOEA [None]
  - DIZZINESS [None]
  - LIVER DISORDER [None]
  - TINNITUS [None]
  - VISUAL ACUITY REDUCED [None]
  - VOMITING [None]
